FAERS Safety Report 15692718 (Version 1)
Quarter: 2018Q4

REPORT INFORMATION
  Report Type: Spontaneous
  Country: US (occurrence: US)
  Receive Date: 20181206
  Receipt Date: 20181206
  Transmission Date: 20190205
  Serious: No
  Sender: FDA-Public Use
  Company Number: US-ROCHE-2225738

PATIENT
  Age: 53 Year
  Sex: Female
  Weight: 72.64 kg

DRUGS (2)
  1. MOTRIN [Concomitant]
     Active Substance: IBUPROFEN
     Indication: PAIN
     Route: 065
  2. OCREVUS [Suspect]
     Active Substance: OCRELIZUMAB
     Indication: MULTIPLE SCLEROSIS
     Route: 065
     Dates: start: 20181116

REACTIONS (4)
  - Oral herpes [Recovered/Resolved]
  - Peripheral swelling [Recovered/Resolved]
  - Dry mouth [Unknown]
  - Lip pain [Unknown]

NARRATIVE: CASE EVENT DATE: 20181116
